FAERS Safety Report 19188489 (Version 2)
Quarter: 2021Q2

REPORT INFORMATION
  Report Type: Spontaneous
  Country: JP (occurrence: JP)
  Receive Date: 20210427
  Receipt Date: 20210524
  Transmission Date: 20210717
  Serious: Yes (Hospitalization)
  Sender: FDA-Public Use
  Company Number: JP-TAKEDA-2021TJP019848

PATIENT
  Age: 60 Year
  Sex: Male
  Weight: 65 kg

DRUGS (3)
  1. ADVATE [Suspect]
     Active Substance: ANTIHEMOPHILIC FACTOR, HUMAN RECOMBINANT
     Indication: HAEMOSTASIS
     Dosage: 2000 INTERNATIONAL UNIT, BID
     Route: 042
     Dates: start: 202103, end: 202104
  2. ADVATE [Suspect]
     Active Substance: ANTIHEMOPHILIC FACTOR, HUMAN RECOMBINANT
     Indication: HAEMOSTASIS
     Dosage: 2000 INTERNATIONAL UNIT, BID
     Route: 042
     Dates: start: 202103, end: 202104
  3. ADVATE [Suspect]
     Active Substance: ANTIHEMOPHILIC FACTOR, HUMAN RECOMBINANT
     Indication: HAEMOSTASIS
     Dosage: 2000 INTERNATIONAL UNIT, BID
     Route: 042
     Dates: start: 202103, end: 202104

REACTIONS (1)
  - Post procedural haematoma [Recovering/Resolving]

NARRATIVE: CASE EVENT DATE: 20210421
